FAERS Safety Report 7897975-5 (Version None)
Quarter: 2011Q4

REPORT INFORMATION
  Report Type: 
  Country: None (occurrence: None)
  Receive Date: 20111107
  Receipt Date: 20111107
  Transmission Date: 20120403
  Serious: Yes (Hospitalization)
  Sender: FDA-Public Use
  Company Number: None

PATIENT
  Sex: Female

DRUGS (1)
  1. PHENTERMINE [Suspect]
     Indication: WEIGHT CONTROL
     Dosage: 37.5 MG
     Route: 048
     Dates: start: 20111024, end: 20111025

REACTIONS (7)
  - BLOOD PRESSURE DIASTOLIC INCREASED [None]
  - PALPITATIONS [None]
  - ASTHENIA [None]
  - ATRIAL FIBRILLATION [None]
  - HEART RATE INCREASED [None]
  - NAUSEA [None]
  - HEADACHE [None]
